FAERS Safety Report 9890091 (Version 1)
Quarter: 2014Q1

REPORT INFORMATION
  Report Type: Spontaneous
  Country: US (occurrence: US)
  Receive Date: 20140212
  Receipt Date: 20140212
  Transmission Date: 20141002
  Serious: No
  Sender: FDA-Public Use
  Company Number: US-BIOGENIDEC-2014BI011202

PATIENT
  Sex: Male
  Weight: 90 kg

DRUGS (6)
  1. TECFIDERA [Suspect]
     Indication: MULTIPLE SCLEROSIS
     Route: 048
     Dates: start: 201309
  2. ZOLOFT [Concomitant]
  3. PROVIGIL [Concomitant]
  4. BACLOFEN [Concomitant]
  5. BENADRYL [Concomitant]
  6. VITAMIN D [Concomitant]

REACTIONS (2)
  - Muscle spasms [Unknown]
  - Depression [Unknown]
